FAERS Safety Report 9443393 (Version 2)
Quarter: 2013Q3

REPORT INFORMATION
  Report Type: Spontaneous
  Country: US (occurrence: None)
  Receive Date: 20130802
  Receipt Date: 20130805
  Transmission Date: 20140515
  Serious: Yes (Hospitalization, Other)
  Sender: FDA-Public Use
  Company Number: 1810352

PATIENT
  Age: 8 Year
  Sex: Female
  Weight: 18 kg

DRUGS (2)
  1. CEFTRIAXONE [Suspect]
     Indication: ENDOCARDITIS BACTERIAL
     Route: 041
     Dates: start: 20130712
  2. CEFTRIAXONE [Suspect]
     Indication: ENDOCARDITIS BACTERIAL
     Route: 041
     Dates: start: 20130712

REACTIONS (7)
  - Throat irritation [None]
  - Screaming [None]
  - Rash [None]
  - Headache [None]
  - Convulsion [None]
  - Vomiting [None]
  - Skin discolouration [None]
